FAERS Safety Report 9909021 (Version 2)
Quarter: 2014Q1

REPORT INFORMATION
  Report Type: Spontaneous
  Country: FR (occurrence: FR)
  Receive Date: 20140219
  Receipt Date: 20140304
  Transmission Date: 20141002
  Serious: Yes (Other)
  Sender: FDA-Public Use
  Company Number: FR-JNJFOC-20140206742

PATIENT
  Sex: Male

DRUGS (3)
  1. SPORANOX [Suspect]
     Indication: ASPERGILLUS INFECTION
     Dosage: FROM 6 WEEKS
     Route: 048
  2. SPORANOX [Suspect]
     Indication: ASPERGILLUS INFECTION
     Dosage: DURING 6 MONTHS
     Route: 048
  3. CORTICOSTEROIDS [Suspect]
     Indication: PRODUCT USED FOR UNKNOWN INDICATION
     Route: 065

REACTIONS (2)
  - Gamma-glutamyltransferase increased [Unknown]
  - Aspergillus infection [Unknown]
